FAERS Safety Report 7700615-9 (Version None)
Quarter: 2011Q3

REPORT INFORMATION
  Report Type: 
  Country: None (occurrence: None)
  Receive Date: 20110822
  Receipt Date: 20110822
  Transmission Date: 20111222
  Serious: Yes (Other)
  Sender: FDA-Public Use
  Company Number: None

PATIENT
  Age: 40 Year
  Sex: Female
  Weight: 61.688 kg

DRUGS (3)
  1. MEDROXYPROGESTERONE [Concomitant]
     Route: 048
  2. LEVEOTHYROXINE [Concomitant]
     Route: 048
  3. VIVELLE-DOT [Suspect]
     Indication: HORMONE REPLACEMENT THERAPY
     Dosage: PATCH
     Route: 003
     Dates: start: 20110806, end: 20110818

REACTIONS (2)
  - DISCOMFORT [None]
  - ABDOMINAL DISTENSION [None]
